FAERS Safety Report 13277208 (Version 1)
Quarter: 2017Q1

REPORT INFORMATION
  Report Type: Spontaneous
  Country: US (occurrence: US)
  Receive Date: 20170228
  Receipt Date: 20170228
  Transmission Date: 20170428
  Serious: Yes (Life-Threatening, Hospitalization, Other)
  Sender: FDA-Public Use
  Company Number: None

PATIENT
  Age: 46 Year
  Sex: Female
  Weight: 77.57 kg

DRUGS (13)
  1. FLEXERIL [Concomitant]
     Active Substance: CYCLOBENZAPRINE HYDROCHLORIDE
  2. PERCETS [Concomitant]
  3. ADALIMUMAB [Suspect]
     Active Substance: ADALIMUMAB
  4. HUMIRA [Suspect]
     Active Substance: ADALIMUMAB
     Indication: HIDRADENITIS
     Dosage: 1 INJECTION TWICE A MONTH
  5. THORAZINE [Concomitant]
     Active Substance: CHLORPROMAZINE
  6. BETAMETHAZO [Concomitant]
  7. CARBO + TAXOL [Concomitant]
  8. PROZAC [Concomitant]
     Active Substance: FLUOXETINE HYDROCHLORIDE
  9. XANAX [Concomitant]
     Active Substance: ALPRAZOLAM
  10. LISINOPRIL. [Concomitant]
     Active Substance: LISINOPRIL
  11. ABILIFY [Concomitant]
     Active Substance: ARIPIPRAZOLE
  12. KETOCONAZOLE. [Concomitant]
     Active Substance: KETOCONAZOLE
  13. KEPPRA [Concomitant]
     Active Substance: LEVETIRACETAM

REACTIONS (3)
  - Alopecia [None]
  - Fungal skin infection [None]
  - Skin bacterial infection [None]
